FAERS Safety Report 5238891-7 (Version None)
Quarter: 2007Q1

REPORT INFORMATION
  Report Type: 
  Country: None (occurrence: None)
  Receive Date: 20070215
  Receipt Date: 20070205
  Transmission Date: 20070707
  Serious: Yes (Other)
  Sender: FDA-Public Use
  Company Number: FR-PFIZER INC-2007010216

PATIENT
  Age: 62 Year
  Sex: Female

DRUGS (2)
  1. LYRICA [Suspect]
     Indication: NEUROPATHY PERIPHERAL
     Dosage: DAILY DOSE:125MG
  2. ACETAMINOPHEN W/ PROPOXYPHENE HCL [Concomitant]

REACTIONS (3)
  - EYE PAIN [None]
  - FATIGUE [None]
  - LOSS OF CONSCIOUSNESS [None]
